FAERS Safety Report 24285462 (Version 2)
Quarter: 2024Q4

REPORT INFORMATION
  Report Type: Spontaneous
  Country: US (occurrence: US)
  Receive Date: 20240905
  Receipt Date: 20241014
  Transmission Date: 20250115
  Serious: No
  Sender: SANOFI AVENTIS
  Company Number: US-SA-2024SA254914

PATIENT
  Age: 62 Year
  Sex: Female

DRUGS (1)
  1. DUPIXENT [Suspect]
     Active Substance: DUPILUMAB
     Indication: Dermatitis atopic
     Dosage: 300 MG, QOW
     Route: 058

REACTIONS (8)
  - Skin discolouration [Unknown]
  - Pruritus [Recovering/Resolving]
  - Therapeutic response shortened [Unknown]
  - Ocular hyperaemia [Unknown]
  - Eye irritation [Unknown]
  - Injection site swelling [Unknown]
  - Dry eye [Unknown]
  - Device use issue [Unknown]

NARRATIVE: CASE EVENT DATE: 20240701
